FAERS Safety Report 4425379-6 (Version None)
Quarter: 2004Q3

REPORT INFORMATION
  Report Type: 
  Country: None (occurrence: None)
  Receive Date: 20040813
  Receipt Date: 20040804
  Transmission Date: 20050211
  Serious: No
  Sender: FDA-Public Use
  Company Number: US-GLAXOSMITHKLINE-A0521407A

PATIENT
  Age: 27 Year
  Sex: Female

DRUGS (2)
  1. WELLBUTRIN XL [Suspect]
     Indication: DEPRESSION
     Route: 048
     Dates: start: 20040701
  2. ATIVAN [Concomitant]
     Route: 048

REACTIONS (3)
  - FLUSHING [None]
  - HEADACHE [None]
  - MEDICATION ERROR [None]
